FAERS Safety Report 25385450 (Version 1)
Quarter: 2025Q2

REPORT INFORMATION
  Report Type: Spontaneous
  Country: US (occurrence: US)
  Receive Date: 20250602
  Receipt Date: 20250602
  Transmission Date: 20250717
  Serious: No
  Sender: Kenvue
  Company Number: US-KENVUE-20250501448

PATIENT
  Sex: Female
  Weight: 96.6 kg

DRUGS (30)
  1. ZYRTEC [Suspect]
     Active Substance: CETIRIZINE HYDROCHLORIDE
     Indication: Sinusitis
     Route: 065
  2. ZYRTEC [Suspect]
     Active Substance: CETIRIZINE HYDROCHLORIDE
     Indication: Hypersensitivity
  3. TYVASO [Concomitant]
     Active Substance: TREPROSTINIL
     Indication: Pulmonary arterial hypertension
     Dates: start: 202411
  4. TYVASO [Concomitant]
     Active Substance: TREPROSTINIL
     Dosage: 6 MICROGRAM, FOUR TIME A DAY
     Dates: start: 2024, end: 2024
  5. TYVASO [Concomitant]
     Active Substance: TREPROSTINIL
     Dosage: 18 MICROGRAM, FOUR TIME A DAY
     Dates: start: 202410, end: 2024
  6. TYVASO [Concomitant]
     Active Substance: TREPROSTINIL
     Dosage: 36 MICROGRAM, FOUR TIME A DAY
     Dates: start: 2024
  7. TYVASO [Concomitant]
     Active Substance: TREPROSTINIL
     Dosage: 24 MICROGRAM, FOUR TIME A DAY
  8. TYVASO [Concomitant]
     Active Substance: TREPROSTINIL
     Dates: start: 20231129, end: 202501
  9. TYVASO DPI [Concomitant]
     Active Substance: TREPROSTINIL
     Indication: Pulmonary arterial hypertension
     Dates: start: 202501
  10. TYVASO DPI [Concomitant]
     Active Substance: TREPROSTINIL
     Dosage: 16 MICROGRAM, FOUR TIME A DAY
     Dates: start: 202501
  11. TYVASO DPI [Concomitant]
     Active Substance: TREPROSTINIL
     Dosage: 32 MICROGRAM, FOUR TIME A DAY
  12. TYVASO DPI [Concomitant]
     Active Substance: TREPROSTINIL
     Dosage: 64 MICROGRAM, FOUR TIME A DAY
  13. ZITHROMAX [Concomitant]
     Active Substance: AZITHROMYCIN DIHYDRATE
     Indication: Product used for unknown indication
     Route: 065
  14. COVID-19 vaccine [Concomitant]
     Indication: COVID-19 immunisation
     Route: 065
  15. COVID-19 vaccine [Concomitant]
     Route: 065
  16. AMBRISENTAN [Concomitant]
     Active Substance: AMBRISENTAN
     Indication: Product used for unknown indication
     Route: 065
  17. AMBRISENTAN [Concomitant]
     Active Substance: AMBRISENTAN
     Route: 065
     Dates: start: 20241127
  18. MORPHINE SULFATE [Concomitant]
     Active Substance: MORPHINE SULFATE
     Indication: Product used for unknown indication
     Route: 065
  19. RIFAXIMIN [Concomitant]
     Active Substance: RIFAXIMIN
     Indication: Product used for unknown indication
     Route: 065
  20. BREO ELLIPTA [Concomitant]
     Active Substance: FLUTICASONE FUROATE\VILANTEROL TRIFENATATE
     Indication: Product used for unknown indication
     Route: 065
  21. TORSEMIDE [Concomitant]
     Active Substance: TORSEMIDE
     Indication: Product used for unknown indication
     Route: 065
  22. PROAIR HFA [Concomitant]
     Active Substance: ALBUTEROL SULFATE
     Indication: Product used for unknown indication
     Route: 065
  23. SPIRONOLACTONE [Concomitant]
     Active Substance: SPIRONOLACTONE
     Indication: Product used for unknown indication
     Route: 065
  24. ACETAMINOPHEN AND CODEINE [Concomitant]
     Active Substance: ACETAMINOPHEN\CODEINE PHOSPHATE
     Indication: Product used for unknown indication
     Route: 065
  25. NYSTATIN [Concomitant]
     Active Substance: NYSTATIN
     Indication: Product used for unknown indication
     Route: 065
  26. VITAMIN B12 [Concomitant]
     Active Substance: CYANOCOBALAMIN
     Indication: Product used for unknown indication
     Route: 065
  27. VITAMIN B12 [Concomitant]
     Active Substance: CYANOCOBALAMIN
     Indication: Product used for unknown indication
     Route: 065
  28. POTASSIUM [Concomitant]
     Active Substance: POTASSIUM
     Indication: Product used for unknown indication
     Route: 065
  29. ZINC [Concomitant]
     Active Substance: ZINC
     Indication: Product used for unknown indication
     Route: 065
  30. MIDODRINE HYDROCHLORIDE [Concomitant]
     Active Substance: MIDODRINE HYDROCHLORIDE
     Indication: Product used for unknown indication
     Route: 065

REACTIONS (2)
  - Dysphonia [Not Recovered/Not Resolved]
  - Product use in unapproved indication [Unknown]
